FAERS Safety Report 9325739 (Version 2)
Quarter: 2013Q2

REPORT INFORMATION
  Report Type: Spontaneous
  Country: SI (occurrence: SI)
  Receive Date: 20130604
  Receipt Date: 20130607
  Transmission Date: 20140414
  Serious: Yes (Life-Threatening, Hospitalization)
  Sender: FDA-Public Use
  Company Number: SI-JNJFOC-20130520252

PATIENT
  Age: 73 Year
  Sex: Female
  Weight: 64.85 kg

DRUGS (4)
  1. XARELTO [Suspect]
     Indication: CEREBROVASCULAR ACCIDENT PROPHYLAXIS
     Route: 048
     Dates: start: 20130415, end: 20130419
  2. XARELTO [Suspect]
     Indication: ATRIAL FIBRILLATION
     Route: 048
     Dates: start: 20130415, end: 20130419
  3. ATACAND [Concomitant]
     Route: 065
  4. CONCOR [Concomitant]
     Route: 065

REACTIONS (6)
  - Thrombocytopenia [Recovered/Resolved]
  - Erythema [Unknown]
  - Petechiae [Unknown]
  - Mouth haemorrhage [Unknown]
  - Gingival bleeding [Unknown]
  - Platelet count abnormal [Unknown]
